FAERS Safety Report 4638645-6 (Version None)
Quarter: 2005Q2

REPORT INFORMATION
  Report Type: 
  Country: None (occurrence: None)
  Receive Date: 20050414
  Receipt Date: 20050414
  Transmission Date: 20051028
  Serious: No
  Sender: FDA-Public Use
  Company Number: None

PATIENT
  Sex: Male
  Weight: 86.8 kg

DRUGS (1)
  1. STEM CELL TRANSPLANT TISSUE [Suspect]
     Indication: MULTIPLE MYELOMA
     Dates: start: 20050204

REACTIONS (2)
  - NAUSEA [None]
  - VOMITING [None]
